FAERS Safety Report 8575432 (Version 2)
Quarter: 2012Q4

REPORT INFORMATION
  Report Type: Report from Study
  Country: US (occurrence: US)
  Receive Date: 20120523
  Receipt Date: 20120914
  Transmission Date: 20130627
  Serious: Yes (Hospitalization, Other)
  Sender: FDA-Public Use
  Company Number: US-BRISTOL-MYERS SQUIBB COMPANY-16589616

PATIENT
  Age: 54 Year
  Sex: Male
  Weight: 102 kg

DRUGS (3)
  1. IPILIMUMAB [Suspect]
     Indication: MALIGNANT MELANOMA
     Dosage: Last dose was on 09Mar2012, cycle 3 skipped
     Route: 042
     Dates: start: 20120106, end: 20120309
  2. ASPIRIN [Suspect]
  3. DEXAMETHASONE [Suspect]

REACTIONS (6)
  - Upper gastrointestinal haemorrhage [Not Recovered/Not Resolved]
  - Hyperglycaemia [Unknown]
  - Cellulitis [Recovering/Resolving]
  - Hypertension [Unknown]
  - Hypoalbuminaemia [Unknown]
  - Lymphocyte count decreased [Unknown]
